FAERS Safety Report 25046807 (Version 2)
Quarter: 2025Q1

REPORT INFORMATION
  Report Type: Spontaneous
  Country: JP (occurrence: JP)
  Receive Date: 20250306
  Receipt Date: 20250321
  Transmission Date: 20250408
  Serious: Yes (Death, Other)
  Sender: MERCK SHARP & DOHME LLC
  Company Number: JP-009507513-2260240

PATIENT

DRUGS (3)
  1. KEYTRUDA [Suspect]
     Active Substance: PEMBROLIZUMAB
     Indication: Lip and/or oral cavity cancer
     Route: 041
     Dates: start: 20210625
  2. FLUOROURACIL [Suspect]
     Active Substance: FLUOROURACIL
     Indication: Lip and/or oral cavity cancer
     Dates: start: 20210625
  3. CARBOPLATIN [Suspect]
     Active Substance: CARBOPLATIN
     Indication: Lip and/or oral cavity cancer
     Dates: start: 20210625

REACTIONS (2)
  - Pneumonia aspiration [Fatal]
  - Pneumonia [Unknown]
